FAERS Safety Report 5977637-1 (Version None)
Quarter: 2008Q4

REPORT INFORMATION
  Report Type: 
  Country: None (occurrence: None)
  Receive Date: 20081203
  Receipt Date: 20081124
  Transmission Date: 20090506
  Serious: Yes (Disabling)
  Sender: FDA-Public Use
  Company Number: US-MERCK-0805USA02803

PATIENT
  Sex: Female

DRUGS (7)
  1. FOSAMAX [Suspect]
     Route: 048
     Dates: start: 19960101, end: 20080101
  2. FOSAMAX [Suspect]
     Route: 048
     Dates: start: 20060515, end: 20061101
  3. FOSAMAX [Suspect]
     Route: 048
     Dates: start: 20070511, end: 20070601
  4. FOSAMAX [Suspect]
     Route: 048
     Dates: start: 20071031, end: 20071101
  5. FOSAMAX PLUS D [Suspect]
     Route: 048
     Dates: start: 20061220, end: 20070301
  6. FOSAMAX PLUS D [Suspect]
     Route: 048
     Dates: start: 20070911, end: 20071001
  7. XANAX [Concomitant]
     Indication: ANXIETY DISORDER
     Route: 065
     Dates: start: 20060101

REACTIONS (4)
  - BONE DISORDER [None]
  - INFECTION [None]
  - OSTEONECROSIS [None]
  - SWELLING [None]
